FAERS Safety Report 4605538-X (Version None)
Quarter: 2005Q1

REPORT INFORMATION
  Report Type: 
  Country: None (occurrence: None)
  Receive Date: 20050310
  Receipt Date: 20040914
  Transmission Date: 20050727
  Serious: No
  Sender: FDA-Public Use
  Company Number: US-BRISTOL-MYERS SQUIBB COMPANY-12707923

PATIENT
  Sex: Female

DRUGS (1)
  1. VAGISTAT-1 [Suspect]

REACTIONS (1)
  - DRUG INEFFECTIVE [None]
